FAERS Safety Report 12978399 (Version 1)
Quarter: 2016Q4

REPORT INFORMATION
  Report Type: Spontaneous
  Country: US (occurrence: US)
  Receive Date: 20161127
  Receipt Date: 20161127
  Transmission Date: 20170207
  Serious: Yes (Other)
  Sender: FDA-Public Use
  Company Number: None

PATIENT
  Age: 60 Year
  Sex: Female
  Weight: 65.7 kg

DRUGS (5)
  1. NOVEN COMBIPATCH: ESTRADIOL/NORETHINDRONE ACETATE [Concomitant]
  2. VITAMIN D [Concomitant]
     Active Substance: CHOLECALCIFEROL
  3. RITALIN [Concomitant]
     Active Substance: METHYLPHENIDATE HYDROCHLORIDE
  4. BUPROPRIAN [Concomitant]
  5. PANTOPRAZOLE SODIUM DELAYED-RELE [Suspect]
     Active Substance: PANTOPRAZOLE SODIUM
     Indication: GASTROOESOPHAGEAL REFLUX DISEASE
     Dosage: ?          QUANTITY:1 TABLET(S);?
     Route: 048
     Dates: start: 20161101, end: 20161122

REACTIONS (2)
  - Tongue discomfort [None]
  - Discomfort [None]

NARRATIVE: CASE EVENT DATE: 20161101
